FAERS Safety Report 8431998-2 (Version None)
Quarter: 2012Q2

REPORT INFORMATION
  Report Type: 
  Country: None (occurrence: None)
  Receive Date: 20120613
  Receipt Date: 20120409
  Transmission Date: 20120825
  Serious: No
  Sender: FDA-Public Use
  Company Number: US-ASTRAZENECA-2012SE05477

PATIENT
  Age: 83 Year
  Sex: Male
  Weight: 52.2 kg

DRUGS (8)
  1. RHINOCORT [Suspect]
     Dosage: TWO SPRAYS EACH NOSTRILS TWO TIMES A DAY
     Route: 045
  2. RHINOCORT [Suspect]
     Indication: NASAL CONGESTION
     Dosage: TWO SPRAYS EACH NOSTRILS TWO TIMES A DAY
     Route: 045
  3. HYDROCODONE BITARTRATE AND ACETAMINOPHEN [Concomitant]
     Indication: PAIN
     Route: 048
     Dates: start: 20070101
  4. XANAX [Concomitant]
  5. LEXAPRO [Concomitant]
     Indication: DEPRESSION
     Route: 048
     Dates: start: 20110101
  6. ALOPRAZAM [Concomitant]
  7. GABAPENTIN [Concomitant]
     Indication: BACK PAIN
     Route: 048
     Dates: start: 20110101
  8. RHINOCORT [Suspect]
     Indication: RHINITIS
     Dosage: TWO SPRAYS EACH NOSTRILS TWO TIMES A DAY
     Route: 045

REACTIONS (2)
  - WEIGHT DECREASED [None]
  - RHINITIS [None]
